FAERS Safety Report 6827052-3 (Version None)
Quarter: 2010Q3

REPORT INFORMATION
  Report Type: 
  Country: None (occurrence: None)
  Receive Date: 20100709
  Receipt Date: 20100630
  Transmission Date: 20110219
  Serious: Yes (Hospitalization)
  Sender: FDA-Public Use
  Company Number: JP-MERCK-1006USA03013

PATIENT
  Age: 82 Year
  Sex: Female

DRUGS (7)
  1. FOSAMAX [Suspect]
     Indication: OSTEOPOROSIS
     Route: 048
     Dates: start: 20100602, end: 20100602
  2. LASIX [Concomitant]
     Indication: CARDIAC FAILURE
     Route: 048
  3. ARICEPT [Concomitant]
     Indication: PARKINSON'S DISEASE
     Route: 048
  4. ECARD HD [Concomitant]
     Indication: HYPERTENSION
     Route: 048
  5. YOKU-KAN-SAN-KA-CHIMPI-HANGE [Concomitant]
     Indication: PARKINSON'S DISEASE
     Route: 048
  6. DIGOXIN [Concomitant]
     Indication: CARDIAC FAILURE
     Route: 048
  7. SYMMETREL [Concomitant]
     Indication: PARKINSON'S DISEASE
     Route: 048

REACTIONS (3)
  - DEPRESSED LEVEL OF CONSCIOUSNESS [None]
  - DYSARTHRIA [None]
  - MUSCULAR WEAKNESS [None]
